FAERS Safety Report 13749530 (Version 2)
Quarter: 2017Q3

REPORT INFORMATION
  Report Type: Spontaneous
  Country: IT (occurrence: IT)
  Receive Date: 20170713
  Receipt Date: 20170721
  Transmission Date: 20171127
  Serious: Yes (Death, Other)
  Sender: FDA-Public Use
  Company Number: PHHY2017IT101823

PATIENT
  Age: 17 Year
  Sex: Male

DRUGS (14)
  1. DEPAKIN [Concomitant]
     Active Substance: VALPROATE SODIUM
     Indication: CONVULSION PROPHYLAXIS
     Dosage: 30 MG/KG, QD (IN 3 DIVIDED DOSES)
     Route: 065
  2. FLUDARABINE [Concomitant]
     Active Substance: FLUDARABINE PHOSPHATE
     Indication: BONE MARROW CONDITIONING REGIMEN
     Route: 065
  3. METHYLPREDNISOLONE. [Suspect]
     Active Substance: METHYLPREDNISOLONE
     Indication: BONE MARROW TRANSPLANT
     Dosage: 0.50 MG/KG, QD
     Route: 065
  4. CYCLOPHOSPHAMIDE. [Concomitant]
     Active Substance: CYCLOPHOSPHAMIDE
     Indication: BONE MARROW CONDITIONING REGIMEN
     Route: 065
  5. CICLOSPORIN [Suspect]
     Active Substance: CYCLOSPORINE
     Indication: PROPHYLAXIS AGAINST GRAFT VERSUS HOST DISEASE
  6. SANDIMMUN NEORAL [Suspect]
     Active Substance: CYCLOSPORINE
     Indication: BONE MARROW TRANSPLANT
     Route: 048
  7. METHYLPREDNISOLONE. [Suspect]
     Active Substance: METHYLPREDNISOLONE
     Indication: IMMUNOSUPPRESSANT DRUG THERAPY
  8. METHOTREXATE. [Suspect]
     Active Substance: METHOTREXATE
     Indication: BONE MARROW TRANSPLANT
     Route: 065
  9. METHOTREXATE. [Suspect]
     Active Substance: METHOTREXATE
     Indication: PROPHYLAXIS AGAINST GRAFT VERSUS HOST DISEASE
  10. CICLOSPORIN [Suspect]
     Active Substance: CYCLOSPORINE
     Indication: BONE MARROW TRANSPLANT
     Dosage: 2.5 MG/KG, Q12H
     Route: 042
  11. CICLOSPORIN [Suspect]
     Active Substance: CYCLOSPORINE
     Indication: IMMUNOSUPPRESSANT DRUG THERAPY
  12. METHYLPREDNISOLONE. [Suspect]
     Active Substance: METHYLPREDNISOLONE
     Indication: PROPHYLAXIS AGAINST GRAFT VERSUS HOST DISEASE
  13. METHOTREXATE. [Suspect]
     Active Substance: METHOTREXATE
     Indication: IMMUNOSUPPRESSANT DRUG THERAPY
  14. BUSULFAN. [Concomitant]
     Active Substance: BUSULFAN
     Indication: BONE MARROW CONDITIONING REGIMEN
     Route: 065

REACTIONS (6)
  - Graft versus host disease in skin [Unknown]
  - Chronic graft versus host disease [Fatal]
  - Seizure [Unknown]
  - Hypertension [Unknown]
  - Posterior reversible encephalopathy syndrome [Unknown]
  - Graft versus host disease in liver [Unknown]
